FAERS Safety Report 4316419-3 (Version None)
Quarter: 2004Q1

REPORT INFORMATION
  Report Type: 
  Country: None (occurrence: None)
  Receive Date: 20040311
  Receipt Date: 20040226
  Transmission Date: 20041129
  Serious: Yes (Hospitalization)
  Sender: FDA-Public Use
  Company Number: 2004009791

PATIENT
  Age: 79 Year
  Sex: Female

DRUGS (5)
  1. ATARAX [Suspect]
     Indication: URTICARIA
     Dosage: ORAL
     Route: 048
     Dates: start: 20020130
  2. SPIRONOLACTONE [Suspect]
     Indication: ESSENTIAL HYPERTENSION
     Dosage: 75 MG DAILY ORAL
     Route: 048
     Dates: start: 20020130, end: 20020606
  3. LIOTHYRONINE SODIUM [Suspect]
     Indication: HYPOTHYROIDISM POSTOPERATIVE
     Dosage: 0.75 DAILY ORAL
     Route: 048
  4. LORATADINE [Suspect]
     Indication: URTICARIA
     Dosage: ORAL
     Route: 048
     Dates: start: 20020130
  5. ACENOCOUMAROL (ACENOCOUMAROL) [Suspect]
     Indication: ATRIAL FIBRILLATION
     Dosage: ORAL
     Route: 048
     Dates: start: 20020130

REACTIONS (3)
  - ECZEMA [None]
  - RASH ERYTHEMATOUS [None]
  - TOXIC SKIN ERUPTION [None]
